FAERS Safety Report 26149706 (Version 1)
Quarter: 2025Q4

REPORT INFORMATION
  Report Type: Spontaneous
  Country: US (occurrence: US)
  Receive Date: 20251212
  Receipt Date: 20251212
  Transmission Date: 20260117
  Serious: Yes (Hospitalization, Other)
  Sender: SANOFI AVENTIS
  Company Number: US-DialogSolutions-SAAVPROD-PI853152-C1

PATIENT
  Age: 63 Year
  Sex: Male

DRUGS (4)
  1. OXALIPLATIN [Suspect]
     Active Substance: OXALIPLATIN
     Indication: Adenocarcinoma gastric
     Dosage: 85 MG/M2, QCY
  2. LEUCOVORIN [Suspect]
     Active Substance: LEUCOVORIN\LEUCOVORIN CALCIUM
     Indication: Adenocarcinoma gastric
     Dosage: 400 MG/M2, QCY
  3. FLUOROURACIL [Suspect]
     Active Substance: FLUOROURACIL
     Indication: Adenocarcinoma gastric
     Dosage: 400 MG/M2, QCY
  4. FLUOROURACIL [Suspect]
     Active Substance: FLUOROURACIL
     Dosage: 1200 MG/M2, QD, PUMP

REACTIONS (22)
  - Encephalopathy [Recovered/Resolved]
  - Generalised tonic-clonic seizure [Recovered/Resolved]
  - Neurotoxicity [Recovered/Resolved]
  - Compulsive handwashing [Recovered/Resolved]
  - Stereotypy [Recovered/Resolved]
  - Nausea [Recovered/Resolved]
  - Discoloured vomit [Recovered/Resolved]
  - Pyrexia [Recovered/Resolved]
  - Tachycardia [Recovered/Resolved]
  - Confusional state [Recovered/Resolved]
  - Hemiparesis [Recovered/Resolved]
  - Mental impairment [Recovered/Resolved]
  - Muscle twitching [Recovered/Resolved]
  - Dyskinesia [Recovered/Resolved]
  - Mental disorder [Recovered/Resolved]
  - Aphasia [Recovered/Resolved]
  - Unresponsive to stimuli [Recovered/Resolved]
  - Hypophagia [Recovered/Resolved]
  - Hyperintensity in brain deep nuclei [Recovered/Resolved]
  - Cerebral mass effect [Recovered/Resolved]
  - Off label use [Recovered/Resolved]
  - Iron deficiency anaemia [Unknown]
